FAERS Safety Report 8603279-5 (Version None)
Quarter: 2012Q3

REPORT INFORMATION
  Report Type: 
  Country: None (occurrence: None)
  Receive Date: 20120817
  Receipt Date: 20120808
  Transmission Date: 20120928
  Serious: Yes (Other)
  Sender: FDA-Public Use
  Company Number: US-BRISTOL-MYERS SQUIBB COMPANY-16753592

PATIENT
  Sex: Female

DRUGS (2)
  1. PREDNISONE TAB [Concomitant]
  2. ONGLYZA [Suspect]

REACTIONS (3)
  - ABDOMINAL PAIN UPPER [None]
  - GASTRIC DISORDER [None]
  - PANCREATIC DISORDER [None]
